FAERS Safety Report 9166226 (Version 1)
Quarter: 2013Q1

REPORT INFORMATION
  Report Type: Spontaneous
  Country: ES (occurrence: ES)
  Receive Date: 20130315
  Receipt Date: 20130315
  Transmission Date: 20140127
  Serious: Yes (Hospitalization, Other)
  Sender: FDA-Public Use
  Company Number: ES-ASTRAZENECA-2013SE15764

PATIENT
  Age: 57 Year
  Sex: 0

DRUGS (5)
  1. CRESTOR [Suspect]
     Indication: DYSLIPIDAEMIA
     Route: 048
     Dates: start: 20120305, end: 20120828
  2. SECALIP [Interacting]
     Indication: DYSLIPIDAEMIA
     Route: 048
     Dates: start: 20120524, end: 20120828
  3. DESLORATADINE [Concomitant]
     Indication: ASTHMA
     Route: 048
     Dates: start: 20120524, end: 20120715
  4. SERETIDE [Concomitant]
     Indication: ASTHMA
     Route: 055
     Dates: start: 2006
  5. VENTOLIN [Concomitant]
     Indication: ASTHMA
     Dosage: 100 MCG (SALBUTAMOL) INHALATION, 1 INHALER 200 DOSE AS REQUIRED
     Route: 055
     Dates: start: 2006

REACTIONS (2)
  - Drug interaction [Recovered/Resolved]
  - Rhabdomyolysis [Recovered/Resolved]
